FAERS Safety Report 24827737 (Version 3)
Quarter: 2025Q1

REPORT INFORMATION
  Report Type: Spontaneous
  Country: DE (occurrence: DE)
  Receive Date: 20250109
  Receipt Date: 20250331
  Transmission Date: 20250409
  Serious: Yes (Death, Hospitalization, Other)
  Sender: BRISTOL-MYERS SQUIBB COMPANY
  Company Number: DE-BRISTOL-MYERS SQUIBB COMPANY-2024-118691

PATIENT
  Age: 58 Year
  Sex: Male
  Weight: 150 kg

DRUGS (8)
  1. ELIQUIS [Suspect]
     Active Substance: APIXABAN
     Indication: Atrial fibrillation
     Route: 048
     Dates: start: 20160331, end: 20230929
  2. METOPROLOL [Concomitant]
     Active Substance: METOPROLOL
     Indication: Blood pressure abnormal
     Dates: start: 20160331, end: 20230929
  3. INDAPAMIDE [Concomitant]
     Active Substance: INDAPAMIDE
     Indication: Blood pressure abnormal
     Dates: start: 20220126, end: 20230929
  4. INDAPAMIDE [Concomitant]
     Active Substance: INDAPAMIDE
     Indication: Fluid retention
  5. AMIODARONE [Concomitant]
     Active Substance: AMIODARONE
     Indication: Cardiac disorder
     Dosage: DOSE: 200 (UNSPECIFIED UNIT)
     Dates: start: 20161227, end: 20230929
  6. PANTOPRAZOLE [Concomitant]
     Active Substance: PANTOPRAZOLE
     Indication: Gastrointestinal disorder
     Dates: start: 20160331, end: 20230929
  7. ALLOPURINOL [Concomitant]
     Active Substance: ALLOPURINOL
     Indication: Blood uric acid abnormal
     Dosage: DOSE: 100 (UNSPECIFIED UNIT)
     Dates: start: 20220923, end: 20230929
  8. FLUPREDNIDENE;MICONAZOLE [Concomitant]
     Indication: Skin discolouration
     Dosage: DOSE: 0.9 MG, 17.37 MG?LOCALLY AND VERY SPARINGLY
     Dates: start: 20221220, end: 20230929

REACTIONS (1)
  - Aortic aneurysm rupture [Fatal]

NARRATIVE: CASE EVENT DATE: 20230929
